FAERS Safety Report 4907781-9 (Version None)
Quarter: 2006Q1

REPORT INFORMATION
  Report Type: 
  Country: None (occurrence: None)
  Receive Date: 20060210
  Receipt Date: 20060117
  Transmission Date: 20060701
  Serious: Yes (Hospitalization, Other)
  Sender: FDA-Public Use
  Company Number: 2006SE00357

PATIENT
  Age: 12460 Day
  Sex: Male

DRUGS (2)
  1. QUETIAPINE [Suspect]
     Route: 048
     Dates: start: 20050301
  2. QUETIAPINE [Suspect]
     Route: 048
     Dates: start: 20060106

REACTIONS (2)
  - ALCOHOL POISONING [None]
  - DRUG TOXICITY [None]
